FAERS Safety Report 8015522-4 (Version None)
Quarter: 2011Q4

REPORT INFORMATION
  Report Type: 
  Country: None (occurrence: None)
  Receive Date: 20111223
  Receipt Date: 20111212
  Transmission Date: 20120403
  Serious: Yes (Death, Life-Threatening, Hospitalization, Other)
  Sender: FDA-Public Use
  Company Number: 2011-4593

PATIENT
  Age: 74 Year
  Sex: Female
  Weight: 43 kg

DRUGS (13)
  1. PREDNISOLONE [Concomitant]
  2. TEMAZEPAM [Concomitant]
  3. PENTASA [Concomitant]
  4. BISOPROLOL FUMARATE [Concomitant]
  5. CALCIUM CARBONATE [Concomitant]
  6. MIRTAZAPINE [Concomitant]
  7. GLYCEROL 2.6% [Concomitant]
  8. RAMIPRIL [Concomitant]
  9. DOXYCYCLINE [Concomitant]
  10. ZOPICLONE (ZOPICLONE) [Concomitant]
  11. DYSPORT [Suspect]
     Indication: TORTICOLLIS
     Dosage: 750 UNITS (750 UNITS,SINGLE CYCLE), INTRAMUSCULAR
     Route: 030
     Dates: start: 20110809, end: 20110809
  12. MACROGOL (MACROGOL) [Concomitant]
  13. MICONAZOLE (MICONAZOLE) [Concomitant]

REACTIONS (14)
  - DYSPHAGIA [None]
  - COMA [None]
  - APALLIC SYNDROME [None]
  - MYOCLONUS [None]
  - ASPIRATION [None]
  - OBSTRUCTIVE AIRWAYS DISORDER [None]
  - HYPOXIC-ISCHAEMIC ENCEPHALOPATHY [None]
  - LOWER RESPIRATORY TRACT INFECTION [None]
  - CHOKING [None]
  - BRONCHOPNEUMONIA [None]
  - SOMNOLENCE [None]
  - RESPIRATORY ARREST [None]
  - FALL [None]
  - GENERAL PHYSICAL HEALTH DETERIORATION [None]
